FAERS Safety Report 24109599 (Version 1)
Quarter: 2024Q3

REPORT INFORMATION
  Report Type: Spontaneous
  Country: BR (occurrence: BR)
  Receive Date: 20240718
  Receipt Date: 20240718
  Transmission Date: 20241017
  Serious: Yes (Other)
  Sender: Unknown Manufacturer
  Company Number: BR-AstraZeneca-2024A155405

PATIENT

DRUGS (8)
  1. METOPROLOL SUCCINATE [Suspect]
     Active Substance: METOPROLOL SUCCINATE
     Indication: Product used for unknown indication
     Dosage: 25 MILLIGRAM
     Route: 048
  2. QTERN [Suspect]
     Active Substance: DAPAGLIFLOZIN\SAXAGLIPTIN HYDROCHLORIDE
     Indication: Diabetes mellitus
     Dosage: UNK (5/10 MG)
     Route: 048
  3. TAPAZOLE [Concomitant]
     Active Substance: METHIMAZOLE
     Indication: Product used for unknown indication
     Dosage: 10 MILLIGRAM
  4. ATORVASTATIN [Concomitant]
     Active Substance: ATORVASTATIN
     Indication: Product used for unknown indication
     Dosage: 40 MILLIGRAM
  5. ASPIRIN\DIHYDROXYALUMINUM AMINOACETATE ANHYDROUS\MAGNESIUM CARBONATE [Concomitant]
     Active Substance: ASPIRIN\DIHYDROXYALUMINUM AMINOACETATE ANHYDROUS\MAGNESIUM CARBONATE
     Indication: Product used for unknown indication
     Dosage: 100 MILLIGRAM
  6. HYDROCHLOROTHIAZIDE\VALSARTAN [Concomitant]
     Active Substance: HYDROCHLOROTHIAZIDE\VALSARTAN
     Indication: Product used for unknown indication
     Dosage: UNK (320/12.5 MG)
  7. NPH INSULIN [Concomitant]
     Active Substance: INSULIN BEEF
     Indication: Product used for unknown indication
     Dosage: UNK
  8. METFORMIN [Concomitant]
     Active Substance: METFORMIN HYDROCHLORIDE
     Indication: Product used for unknown indication
     Dosage: 850 MILLIGRAM, TID

REACTIONS (8)
  - Arterial occlusive disease [Unknown]
  - Venous occlusion [Unknown]
  - Labyrinthitis [Unknown]
  - Movement disorder [Unknown]
  - Hypertension [Unknown]
  - Blood triglycerides increased [Unknown]
  - Thyroid disorder [Unknown]
  - Fatigue [Unknown]
